FAERS Safety Report 21485830 (Version 1)
Quarter: 2022Q4

REPORT INFORMATION
  Report Type: Spontaneous
  Country: US (occurrence: None)
  Receive Date: 20221019
  Receipt Date: 20221019
  Transmission Date: 20230112
  Serious: Yes (Hospitalization)
  Sender: FDA-Public Use
  Company Number: None

PATIENT
  Age: 69 Year
  Sex: Female
  Weight: 109.32 kg

DRUGS (10)
  1. VERZENIO [Suspect]
     Active Substance: ABEMACICLIB
     Indication: Breast cancer female
     Dosage: FREQUENCY : TWICE A DAY;?
     Route: 048
     Dates: start: 20220923, end: 20221017
  2. ALBUTEROL [Concomitant]
  3. ATORVASTATIN [Concomitant]
  4. ESOMEPRAZOLE [Concomitant]
  5. FLUTICASONE (NASAL) [Concomitant]
  6. FUROSEMIDE [Concomitant]
     Active Substance: FUROSEMIDE
  7. LODOCAINE AND PRILOCAINE [Concomitant]
  8. MAGNESIUM OXIDE [Concomitant]
  9. ONDANSETRON [Concomitant]
  10. POTASSIUM CHLORIDE [Concomitant]

REACTIONS (1)
  - Cardiac disorder [None]

NARRATIVE: CASE EVENT DATE: 20221017
